FAERS Safety Report 22289743 (Version 1)
Quarter: 2023Q2

REPORT INFORMATION
  Report Type: Spontaneous
  Country: US (occurrence: None)
  Receive Date: 20230504
  Receipt Date: 20230504
  Transmission Date: 20230721
  Serious: Yes (Other)
  Sender: FDA-Public Use
  Company Number: None

PATIENT
  Age: 39 Year
  Sex: Female

DRUGS (1)
  1. FERRLECIT [Suspect]
     Active Substance: SODIUM FERRIC GLUCONATE COMPLEX
     Indication: Iron deficiency
     Dosage: 250 MG INTRAVENOUS
     Route: 042
     Dates: start: 20230327, end: 20230327

REACTIONS (7)
  - Back pain [None]
  - Abdominal pain [None]
  - Chest pain [None]
  - Paraesthesia [None]
  - Painful respiration [None]
  - Infusion related reaction [None]
  - Movement disorder [None]

NARRATIVE: CASE EVENT DATE: 20230327
